FAERS Safety Report 10167654 (Version 1)
Quarter: 2014Q2

REPORT INFORMATION
  Report Type: Spontaneous
  Country: JP (occurrence: JP)
  Receive Date: 20140512
  Receipt Date: 20140512
  Transmission Date: 20141212
  Serious: Yes (Death)
  Sender: FDA-Public Use
  Company Number: JP-MALLINCKRODT-T201402135

PATIENT
  Age: 65 Year
  Sex: Male
  Weight: 45 kg

DRUGS (8)
  1. METHADONE [Suspect]
     Indication: CANCER PAIN
     Dosage: 10 MG, (30 MG DAILY DOSE)
     Route: 048
     Dates: start: 20140221, end: 20140226
  2. METHADONE [Suspect]
     Dosage: 10 MG, (20 MG DAILY DOSE)
     Route: 048
     Dates: start: 20140227, end: 20140328
  3. AMOXAN [Suspect]
     Dosage: 20 MG, UNK
     Route: 048
     Dates: start: 20140219, end: 20140224
  4. OPSO [Concomitant]
     Dosage: 30 MG, PRN
     Route: 050
     Dates: start: 20140220
  5. ACETAMINOPHEN [Concomitant]
     Dosage: 1.5 G, UNK
     Route: 048
     Dates: start: 20140219
  6. MAGNESIUM OXIDE [Concomitant]
     Dosage: 1.5 G, UNK
     Route: 048
  7. RINDERON [Concomitant]
     Dosage: 2 MG, UNK
     Route: 050
     Dates: start: 20140225, end: 20140227
  8. MORPHES [Concomitant]

REACTIONS (3)
  - Oesophageal carcinoma [Fatal]
  - Urticaria [Recovering/Resolving]
  - Delirium [Recovered/Resolved]
